FAERS Safety Report 9771319 (Version 1)
Quarter: 2013Q4

REPORT INFORMATION
  Report Type: Spontaneous
  Country: US (occurrence: US)
  Receive Date: 20131218
  Receipt Date: 20131218
  Transmission Date: 20140711
  Serious: Yes (Other)
  Sender: FDA-Public Use
  Company Number: CHPA2013US018358

PATIENT
  Age: 80 Year
  Sex: Female

DRUGS (1)
  1. VOLTAREN [Suspect]
     Indication: NECK INJURY
     Dosage: 2 DF, QD
     Route: 048
     Dates: end: 20131209

REACTIONS (1)
  - Thoracic vertebral fracture [Not Recovered/Not Resolved]
